FAERS Safety Report 6856812-8 (Version None)
Quarter: 2010Q3

REPORT INFORMATION
  Report Type: 
  Country: None (occurrence: None)
  Receive Date: 20100719
  Receipt Date: 20100715
  Transmission Date: 20110219
  Serious: Yes (Hospitalization)
  Sender: FDA-Public Use
  Company Number: US-BRISTOL-MYERS SQUIBB COMPANY-15171572

PATIENT
  Age: 33 Year
  Sex: Female

DRUGS (20)
  1. CARBOPLATIN [Suspect]
     Indication: NEOPLASM
     Dosage: DAY 1 FOR EACH CYCLE EVERY 21D 594MG, 445MG ON 3F10,10MR,31MR,21AP,12MY2010.
     Route: 042
     Dates: start: 20100203, end: 20100512
  2. GEMCITABINE HCL [Suspect]
     Indication: NEOPLASM
     Dosage: DAY ONE AND DAY 8 OF EACH CYCLE (1000MG/M2 TOTAL DOSE 2030MG)03FEB2010, 2030MG ON 10FEB2010
     Route: 042
     Dates: start: 20100203, end: 20100210
  3. ONDANSETRON [Concomitant]
     Indication: PREMEDICATION
     Dates: start: 20100203
  4. DEXAMETHASONE ACETATE [Concomitant]
     Indication: PREMEDICATION
     Dates: start: 20100203
  5. RIZATRIPTAN BENZOATE [Concomitant]
     Indication: HEADACHE
     Dates: start: 20091223
  6. BISACODYL [Concomitant]
     Indication: CONSTIPATION
     Dates: start: 20090223
  7. CITALOPRAM HYDROBROMIDE [Concomitant]
     Indication: DEPRESSION
     Dates: start: 20091223
  8. CITALOPRAM HYDROBROMIDE [Concomitant]
     Indication: DEPRESSION
     Dates: start: 20091223
  9. LORAZEPAM [Concomitant]
     Indication: ANXIETY
     Dosage: 1 IN 6HRS PRN
     Dates: start: 20091223
  10. VICKS FORMULA 44 [Concomitant]
     Indication: NASOPHARYNGITIS
     Dosage: 1 DOSAGE FORM= 8 DOSAGE FORM(2 DOSAGE FORM,4 IN 1 DAY)
     Dates: start: 20100224
  11. PARACETAMOL [Concomitant]
     Indication: PREMEDICATION
     Dates: start: 20100217, end: 20100217
  12. PROCHLORPERAZINE EDISYLATE [Concomitant]
     Indication: NAUSEA
     Dosage: EVERY 6 HR AS NEEDED
     Dates: start: 20100203
  13. POTASSIUM CHLORIDE [Concomitant]
     Indication: MINERAL SUPPLEMENTATION
     Dates: start: 20100421, end: 20100503
  14. POTASSIUM CHLORIDE [Concomitant]
     Indication: PROPHYLAXIS
     Dates: start: 20100421, end: 20100503
  15. GABAPENTIN [Concomitant]
     Indication: HOT FLUSH
     Dates: start: 20100331
  16. GABAPENTIN [Concomitant]
     Indication: PAIN
     Dates: start: 20100331
  17. GABAPENTIN [Concomitant]
     Indication: ARTHRALGIA
     Dates: start: 20100331
  18. LIDOCAINE [Concomitant]
     Indication: PROPHYLAXIS
     Route: 061
     Dates: start: 20100421
  19. SENNA [Concomitant]
     Indication: CONSTIPATION
     Dosage: 4 DF = 2 TABLET , 2 AT BET TIME
     Dates: start: 20091223
  20. HEPARIN [Concomitant]
     Indication: INTRAVENOUS CATHETER MANAGEMENT
     Dosage: 1 DF=500 UNIT
     Dates: start: 20100217, end: 20100512

REACTIONS (3)
  - HEADACHE [None]
  - OEDEMA [None]
  - VOMITING [None]
